FAERS Safety Report 12714695 (Version 4)
Quarter: 2016Q4

REPORT INFORMATION
  Report Type: Spontaneous
  Country: GB (occurrence: GB)
  Receive Date: 20160905
  Receipt Date: 20161019
  Transmission Date: 20170207
  Serious: Yes (Life-Threatening)
  Sender: FDA-Public Use
  Company Number: GB-ABBVIE-16K-167-1717767-00

PATIENT
  Age: 43 Year
  Sex: Female

DRUGS (3)
  1. HUMIRA [Suspect]
     Active Substance: ADALIMUMAB
     Indication: CROHN^S DISEASE
     Route: 058
     Dates: start: 20160622, end: 20160630
  2. INFLECTRA [Suspect]
     Active Substance: INFLIXIMAB-DYYB
     Indication: CROHN^S DISEASE
     Route: 065
     Dates: start: 20160609, end: 20160609
  3. PREDNISONE. [Concomitant]
     Active Substance: PREDNISONE
     Indication: PRODUCT USED FOR UNKNOWN INDICATION

REACTIONS (17)
  - Eye contusion [Unknown]
  - Phlebitis [Unknown]
  - Amnesia [Not Recovered/Not Resolved]
  - Swollen tongue [Not Recovered/Not Resolved]
  - Muscle spasms [Unknown]
  - Respiratory arrest [Recovered/Resolved]
  - Skin discolouration [Unknown]
  - Intellectual disability [Unknown]
  - Mental impairment [Not Recovered/Not Resolved]
  - Memory impairment [Not Recovered/Not Resolved]
  - Facial spasm [Recovering/Resolving]
  - Contusion [Not Recovered/Not Resolved]
  - Vein disorder [Unknown]
  - Nervous system disorder [Unknown]
  - Anaphylactic shock [Recovered/Resolved]
  - Depression [Unknown]
  - Headache [Not Recovered/Not Resolved]

NARRATIVE: CASE EVENT DATE: 201606
